FAERS Safety Report 5090891-6 (Version None)
Quarter: 2006Q3

REPORT INFORMATION
  Report Type: 
  Country: None (occurrence: None)
  Receive Date: 20060823
  Receipt Date: 20060818
  Transmission Date: 20061208
  Serious: Yes (Hospitalization)
  Sender: FDA-Public Use
  Company Number: THQ2006A00782

PATIENT
  Age: 70 Year
  Sex: Female

DRUGS (12)
  1. LANSOPRAZOLE [Suspect]
     Indication: DRUG USE FOR UNKNOWN INDICATION
     Dosage: 30 MG PER ORAL
     Route: 048
     Dates: start: 20051230, end: 20060505
  2. ATACAND HCT [Suspect]
     Indication: DRUG USE FOR UNKNOWN INDICATION
     Dosage: 16+12.5 MG PER ORAL
     Route: 048
  3. ALLOPURINOL [Suspect]
     Indication: DRUG USE FOR UNKNOWN INDICATION
  4. AVAPRO [Suspect]
     Indication: ESSENTIAL HYPERTENSION
     Dosage: 150 MG, (150 MG, 1 IN 1 D) PER ORAL
     Route: 048
  5. CELEBREX [Suspect]
     Indication: DRUG USE FOR UNKNOWN INDICATION
     Dosage: 100 MG (100 MG, 1 IN 1 D) PER ORAL
     Route: 048
     Dates: start: 20051214, end: 20060505
  6. INDAPAMIDE [Suspect]
     Indication: ESSENTIAL HYPERTENSION
     Dosage: 1.3 MG (1.3 MG, 1 IN 1 D) PER ORAL
     Route: 048
  7. LIPIDIL [Suspect]
     Indication: DRUG USE FOR UNKNOWN INDICATION
     Dosage: 160 MG (160 MG, 1 IN 1 D) PER ORAL
     Route: 048
     Dates: end: 20060505
  8. RENITEC (ENALAPRIL) [Suspect]
     Indication: DRUG USE FOR UNKNOWN INDICATION
     Dosage: 40 MG (40 MG, 1 IN 1 D), PER ORAL
     Route: 048
     Dates: end: 20060505
  9. ZANIDIP  (LERCANIDIPINE HYDROCHLORIDE) [Suspect]
     Indication: DRUG USE FOR UNKNOWN INDICATION
     Dosage: 20 MG (20 MG, 1 IN 1 D) PER ORAL
     Route: 048
     Dates: end: 20060505
  10. ENDEP [Concomitant]
  11. METHYLDOPA [Concomitant]
  12. DIAMICRON MR (GLICLAZIDE) [Concomitant]

REACTIONS (1)
  - RENAL FAILURE ACUTE [None]
